FAERS Safety Report 7606515-7 (Version None)
Quarter: 2011Q3

REPORT INFORMATION
  Report Type: 
  Country: None (occurrence: None)
  Receive Date: 20110713
  Receipt Date: 20101214
  Transmission Date: 20111222
  Serious: Yes (Hospitalization)
  Sender: FDA-Public Use
  Company Number: US-BAYER-2011-005638

PATIENT
  Age: 54 Year
  Sex: Female
  Weight: 68 kg

DRUGS (9)
  1. BETASERON [Suspect]
     Dosage: 8 MIU, QOD
     Route: 058
     Dates: start: 20070401
  2. TELMISARTAN AND HYDROCHLOROTHIAZIDE [Concomitant]
  3. CALCIUM CARBONATE [Concomitant]
  4. TELMISARTAN AND HYDROCHLOROTHIAZIDE [Concomitant]
  5. MONTELUKAST SODIUM [Concomitant]
  6. FELODIPINE [Concomitant]
  7. BETASERON [Suspect]
     Indication: RELAPSING-REMITTING MULTIPLE SCLEROSIS
     Dosage: 8 MIU, QOD
     Route: 058
     Dates: start: 20030414, end: 20070122
  8. FEXOFENADINE [Concomitant]
  9. VITAMIN D [Concomitant]

REACTIONS (5)
  - PYREXIA [None]
  - GLOMUS TUMOUR [None]
  - ANAEMIA [None]
  - BURNING SENSATION [None]
  - NIGHT SWEATS [None]
